FAERS Safety Report 10480492 (Version 2)
Quarter: 2016Q4

REPORT INFORMATION
  Report Type: Spontaneous
  Country: IN (occurrence: IN)
  Receive Date: 20140929
  Receipt Date: 20161228
  Transmission Date: 20170206
  Serious: Yes (Other)
  Sender: FDA-Public Use
  Company Number: IN-AUROBINDO-AUR-APL-2014-10237

PATIENT
  Age: 20 Year
  Sex: Male

DRUGS (2)
  1. ACICLOVIR [Suspect]
     Active Substance: ACYCLOVIR
     Indication: OPHTHALMIC HERPES SIMPLEX
  2. ACICLOVIR [Suspect]
     Active Substance: ACYCLOVIR
     Indication: UVEITIS
     Dosage: 400 MG, 5 TIMES DAILY
     Route: 048

REACTIONS (2)
  - Cataract subcapsular [Recovered/Resolved]
  - Visual acuity reduced [Recovered/Resolved]
